FAERS Safety Report 6211372-X (Version None)
Quarter: 2009Q2

REPORT INFORMATION
  Report Type: 
  Country: None (occurrence: None)
  Receive Date: 20090522
  Receipt Date: 20090421
  Transmission Date: 20091009
  Serious: No
  Sender: FDA-Public Use
  Company Number: 8045080

PATIENT
  Age: 56 Year
  Sex: Male
  Weight: 113.6 kg

DRUGS (7)
  1. CIMZIA [Suspect]
     Indication: CROHN'S DISEASE
     Dosage: 400 MG SC
     Route: 058
     Dates: start: 20081001
  2. LIPITOR [Concomitant]
  3. METOPROLOL SUCCINATE [Concomitant]
  4. LEXAPRO [Concomitant]
  5. FLUDROCORTISONE [Concomitant]
  6. CLONAZEPAM [Concomitant]
  7. ASPIRIN [Concomitant]

REACTIONS (2)
  - FUNGUS BODY FLUID IDENTIFIED [None]
  - RASH PRURITIC [None]
